FAERS Safety Report 8574129-0 (Version None)
Quarter: 2012Q3

REPORT INFORMATION
  Report Type: 
  Country: None (occurrence: None)
  Receive Date: 20120806
  Receipt Date: 20120806
  Transmission Date: 20120928
  Serious: Yes (Hospitalization)
  Sender: FDA-Public Use
  Company Number: PHHY2011GB61670

PATIENT
  Age: 49 Year
  Sex: Male

DRUGS (2)
  1. CLOZARIL [Suspect]
     Indication: SCHIZOPHRENIA
     Route: 048
     Dates: start: 20060327
  2. IBUPROFEN [Suspect]
     Dosage: 78 DF, UNK
     Route: 048
     Dates: start: 20060705

REACTIONS (1)
  - INTENTIONAL OVERDOSE [None]
